FAERS Safety Report 8011238-9 (Version None)
Quarter: 2011Q4

REPORT INFORMATION
  Report Type: 
  Country: None (occurrence: None)
  Receive Date: 20111227
  Receipt Date: 20111227
  Transmission Date: 20120403
  Serious: No
  Sender: FDA-Public Use
  Company Number: None

PATIENT
  Age: 43 Year
  Sex: Male
  Weight: 103.87 kg

DRUGS (1)
  1. AVELOX [Suspect]
     Indication: STREPTOCOCCAL INFECTION
     Dosage: 1 TABLET
     Route: 048
     Dates: start: 20111223, end: 20111223

REACTIONS (3)
  - RASH [None]
  - PRURITUS [None]
  - ERYTHEMA [None]
